FAERS Safety Report 5358731-5 (Version None)
Quarter: 2007Q2

REPORT INFORMATION
  Report Type: 
  Country: None (occurrence: None)
  Receive Date: 20070615
  Receipt Date: 20070606
  Transmission Date: 20071010
  Serious: Yes (Hospitalization)
  Sender: FDA-Public Use
  Company Number: GB-ROCHE-501761

PATIENT
  Age: 13 Year
  Sex: Male

DRUGS (3)
  1. ISOTRETINOIN [Suspect]
     Indication: ACNE
     Route: 065
  2. ISOTRETINOIN [Suspect]
     Route: 065
  3. ERYTHROMYCIN [Concomitant]
     Indication: ACNE

REACTIONS (5)
  - ACNE FULMINANS [None]
  - BACK PAIN [None]
  - LEUKOCYTOSIS [None]
  - NEUTROPHILIA [None]
  - OSTEOMYELITIS [None]
